FAERS Safety Report 24874498 (Version 2)
Quarter: 2025Q1

REPORT INFORMATION
  Report Type: Spontaneous
  Country: TH (occurrence: TH)
  Receive Date: 20250122
  Receipt Date: 20250317
  Transmission Date: 20250409
  Serious: No
  Sender: PFIZER
  Company Number: TH-PFIZER INC-202500011934

PATIENT

DRUGS (1)
  1. ZITHROMAX [Suspect]
     Active Substance: AZITHROMYCIN DIHYDRATE

REACTIONS (1)
  - Product contamination [Unknown]
